FAERS Safety Report 18139681 (Version 1)
Quarter: 2020Q3

REPORT INFORMATION
  Report Type: Spontaneous
  Country: AU (occurrence: AU)
  Receive Date: 20200812
  Receipt Date: 20200812
  Transmission Date: 20201103
  Serious: Yes (Hospitalization, Other)
  Sender: FDA-Public Use
  Company Number: AU-LEADINGPHARMA-AU-2020LEALIT00127

PATIENT
  Age: 65 Year
  Sex: Male

DRUGS (6)
  1. DENOSUMAB [Concomitant]
     Active Substance: DENOSUMAB
     Indication: PROSTATE CANCER
     Route: 058
  2. CALCITRIOL. [Suspect]
     Active Substance: CALCITRIOL
     Indication: URINE CALCIUM INCREASED
     Dosage: 6 MICROGRAM
     Route: 065
  3. CHOLECALCIFEROL [Concomitant]
     Active Substance: CHOLECALCIFEROL
     Route: 065
  4. CALCIUM [Interacting]
     Active Substance: CALCIUM
     Indication: HYPOCALCAEMIA
     Dosage: HIGH DOSE
     Route: 042
  5. CALCIUM [Interacting]
     Active Substance: CALCIUM
     Route: 048
  6. HYDROCHLOROTHIAZIDE TABLETS USP [Suspect]
     Active Substance: HYDROCHLOROTHIAZIDE
     Indication: URINE CALCIUM INCREASED
     Route: 065

REACTIONS (2)
  - Hypocalcaemia [Recovered/Resolved]
  - Drug ineffective [Unknown]
